FAERS Safety Report 7960250-4 (Version None)
Quarter: 2011Q4

REPORT INFORMATION
  Report Type: 
  Country: None (occurrence: None)
  Receive Date: 20111201
  Receipt Date: 20111117
  Transmission Date: 20120403
  Serious: Yes (Death)
  Sender: FDA-Public Use
  Company Number: 2011EK000025

PATIENT
  Age: 76 Year
  Sex: Male

DRUGS (5)
  1. BICALUTAMIDE [Concomitant]
  2. CARDENE [Suspect]
     Indication: AORTIC ANEURYSM SYPHILITIC
     Dosage: IV
     Route: 042
  3. NITROGLYCERIN [Concomitant]
  4. PENICILLIN [Concomitant]
  5. FUROSEMIDE [Concomitant]

REACTIONS (7)
  - AORTIC DISSECTION [None]
  - AORTIC BYPASS [None]
  - POST PROCEDURAL HAEMORRHAGE [None]
  - HYPOTENSION [None]
  - ANASTOMOTIC LEAK [None]
  - AORTITIS SYPHILITIC [None]
  - AORTIC ARTERIOSCLEROSIS [None]
